FAERS Safety Report 5831619-9 (Version None)
Quarter: 2008Q3

REPORT INFORMATION
  Report Type: 
  Country: None (occurrence: None)
  Receive Date: 20080801
  Receipt Date: 20080723
  Transmission Date: 20090109
  Serious: Yes (Other)
  Sender: FDA-Public Use
  Company Number: PT-PFIZER INC-2008063148

PATIENT
  Age: 48 Year
  Sex: Female

DRUGS (4)
  1. CHANTIX [Suspect]
     Indication: SMOKING CESSATION THERAPY
     Route: 048
  2. CHANTIX [Suspect]
     Dosage: TEXT:0,5 MG BID  TDD:1 MG
     Route: 048
  3. CHANTIX [Suspect]
     Dosage: TEXT:0,5 MG BID  TDD:1 MG
     Route: 048
  4. PARACETAMOL [Concomitant]

REACTIONS (3)
  - CONSTIPATION [None]
  - GASTROOESOPHAGEAL REFLUX DISEASE [None]
  - INTESTINAL DILATATION [None]
